FAERS Safety Report 4376479-0 (Version None)
Quarter: 2004Q2

REPORT INFORMATION
  Report Type: 
  Country: None (occurrence: None)
  Receive Date: 20040608
  Receipt Date: 20040526
  Transmission Date: 20050107
  Serious: Yes (Hospitalization)
  Sender: FDA-Public Use
  Company Number: 206839

PATIENT
  Age: 52 Year
  Sex: Female

DRUGS (21)
  1. HERCEPTIN [Suspect]
     Indication: BREAST CANCER
     Dosage: SE IMAGE
     Route: 042
     Dates: start: 20030811, end: 20030825
  2. HERCEPTIN [Suspect]
     Indication: BREAST CANCER
     Dosage: SE IMAGE
     Route: 042
     Dates: start: 20030915, end: 20030929
  3. HERCEPTIN [Suspect]
     Indication: BREAST CANCER
     Dosage: SE IMAGE
     Route: 042
     Dates: start: 20030714, end: 20040119
  4. HERCEPTIN [Suspect]
     Indication: BREAST CANCER
     Dosage: SE IMAGE
     Route: 042
     Dates: start: 20030728
  5. TAXOTERE [Suspect]
     Dosage: 100 MG/M2, Q3W , INTRAVENOUS
     Route: 042
     Dates: start: 20030715, end: 20030916
  6. DOXORUBICIN HCL [Suspect]
     Dosage: 60 MG/M2, Q3W, INTRAVENOUS
     Route: 042
     Dates: start: 20030422, end: 20030624
  7. CYTOXAN [Suspect]
     Dosage: 600MG/M2, Q3W, INTRAVENOUS
     Route: 042
     Dates: start: 20030422, end: 20030624
  8. ZOLOFT [Concomitant]
  9. HYDRALAZINE HCL [Concomitant]
  10. CARDIZEM [Concomitant]
  11. ZOFRAN [Concomitant]
  12. COUMADIN [Concomitant]
  13. COMPAZINE [Concomitant]
  14. REMERON [Concomitant]
  15. LASIX [Concomitant]
  16. K-TAB [Concomitant]
  17. MOTRIL (IBUPROFEN) [Concomitant]
  18. SINGULAIR [Concomitant]
  19. ADVAIR (SALMETEROL XINAFOATE, FLUTICASONE PROPIONATE) [Concomitant]
  20. GLUPIZIDE (GLIPIZIDE) [Concomitant]
  21. CELEBREX [Concomitant]

REACTIONS (4)
  - ATELECTASIS [None]
  - CARDIAC FAILURE CONGESTIVE [None]
  - PNEUMONIA [None]
  - RESTRICTIVE PULMONARY DISEASE [None]
